FAERS Safety Report 6684965-3 (Version None)
Quarter: 2010Q2

REPORT INFORMATION
  Report Type: 
  Country: None (occurrence: None)
  Receive Date: 20100416
  Receipt Date: 20100413
  Transmission Date: 20101027
  Serious: Yes (Other)
  Sender: FDA-Public Use
  Company Number: B0633679A

PATIENT

DRUGS (1)
  1. NIQUITIN GUM [Suspect]
     Indication: DRUG USE FOR UNKNOWN INDICATION
     Route: 002

REACTIONS (2)
  - DRUG DEPENDENCE [None]
  - NICOTINE DEPENDENCE [None]
